FAERS Safety Report 20572531 (Version 4)
Quarter: 2022Q4

REPORT INFORMATION
  Report Type: Spontaneous
  Country: US (occurrence: None)
  Receive Date: 20220309
  Receipt Date: 20221013
  Transmission Date: 20230113
  Serious: Yes (Hospitalization, Other)
  Sender: FDA-Public Use
  Company Number: US-Hikma Pharmaceuticals USA Inc.-US-H14001-22-00641

PATIENT
  Age: 41 Year
  Sex: Female
  Weight: 78.5 kg

DRUGS (7)
  1. LITHIUM [Suspect]
     Active Substance: LITHIUM
     Indication: Bipolar disorder
     Route: 048
     Dates: start: 2018, end: 202108
  2. TOZINAMERAN [Suspect]
     Active Substance: TOZINAMERAN
     Indication: COVID-19 immunisation
     Dosage: UNKNOWN
     Route: 030
     Dates: start: 20200909, end: 20200909
  3. TOZINAMERAN [Suspect]
     Active Substance: TOZINAMERAN
     Dosage: UNKNOWN
     Route: 030
     Dates: start: 20200929, end: 20200929
  4. TOZINAMERAN [Suspect]
     Active Substance: TOZINAMERAN
     Dosage: UNKNOWN
     Route: 030
     Dates: start: 20210220, end: 20210220
  5. TOZINAMERAN [Suspect]
     Active Substance: TOZINAMERAN
     Dosage: UNKNOWN
     Route: 030
     Dates: start: 20210312, end: 20210312
  6. ZOLOFT [Suspect]
     Active Substance: SERTRALINE HYDROCHLORIDE
     Indication: Depression
     Route: 048
     Dates: start: 2016, end: 202108
  7. ZYPREXA [Suspect]
     Active Substance: OLANZAPINE
     Indication: Bipolar disorder
     Route: 048
     Dates: start: 2018

REACTIONS (3)
  - Bipolar disorder [Recovered/Resolved]
  - Anxiety [Unknown]
  - Treatment noncompliance [Unknown]
